FAERS Safety Report 9194090 (Version 1)
Quarter: 2013Q1

REPORT INFORMATION
  Report Type: Spontaneous
  Country: FI (occurrence: FI)
  Receive Date: 20130327
  Receipt Date: 20130327
  Transmission Date: 20140127
  Serious: Yes (Hospitalization)
  Sender: FDA-Public Use
  Company Number: FI-ELI_LILLY_AND_COMPANY-FI201302003096

PATIENT
  Age: 66 None
  Sex: Female

DRUGS (3)
  1. FORSTEO [Suspect]
     Indication: OSTEOPOROSIS
     Dosage: 20 UG, QD
     Route: 058
     Dates: start: 2012
  2. CORTISONE [Concomitant]
  3. CALCIUM D                          /00944201/ [Concomitant]
     Indication: MEDICAL DIET

REACTIONS (6)
  - Urinary tract infection [Unknown]
  - Lung infection [Not Recovered/Not Resolved]
  - Influenza [Not Recovered/Not Resolved]
  - Dysuria [Not Recovered/Not Resolved]
  - Pain [Not Recovered/Not Resolved]
  - Cystitis interstitial [Not Recovered/Not Resolved]
